FAERS Safety Report 12166715 (Version 1)
Quarter: 2016Q1

REPORT INFORMATION
  Report Type: Spontaneous
  Country: CA (occurrence: CA)
  Receive Date: 20160310
  Receipt Date: 20160310
  Transmission Date: 20160526
  Serious: Yes (Hospitalization, Other)
  Sender: FDA-Public Use
  Company Number: CA-ROCHE-1459906

PATIENT
  Age: 75 Year
  Sex: Female

DRUGS (4)
  1. XOLAIR [Suspect]
     Active Substance: OMALIZUMAB
     Indication: ASTHMA
     Route: 058
     Dates: start: 20100413
  2. SEREVENT DISKUS [Concomitant]
     Active Substance: SALMETEROL XINAFOATE
  3. PREDNISONE. [Concomitant]
     Active Substance: PREDNISONE
  4. ALVESCO [Concomitant]
     Active Substance: CICLESONIDE

REACTIONS (5)
  - Wrist fracture [Unknown]
  - Nasopharyngitis [Unknown]
  - Diverticulitis [Unknown]
  - Fall [Unknown]
  - Hip fracture [Recovering/Resolving]

NARRATIVE: CASE EVENT DATE: 2014
